FAERS Safety Report 5912906-2 (Version None)
Quarter: 2008Q4

REPORT INFORMATION
  Report Type: 
  Country: None (occurrence: None)
  Receive Date: 20081006
  Receipt Date: 20080925
  Transmission Date: 20090506
  Serious: Yes (Death)
  Sender: FDA-Public Use
  Company Number: 2008-02786

PATIENT
  Age: 67 Year
  Sex: Male
  Weight: 72 kg

DRUGS (8)
  1. VELCADE [Suspect]
     Indication: MULTIPLE MYELOMA
     Dosage: 3.5 MG,  INTRAVENOUS
     Route: 042
     Dates: start: 20080215, end: 20080413
  2. NAPROXEN [Concomitant]
  3. ZOLPIDEM TARTRATE [Concomitant]
  4. ALLOPURINOL [Concomitant]
  5. MORPHINE SULFATE [Concomitant]
  6. LANSOPRAZOLE [Concomitant]
  7. SENNA (SENNA) [Concomitant]
  8. ACETAMINOPHEN [Concomitant]

REACTIONS (3)
  - DRUG INEFFECTIVE [None]
  - EXTRADURAL ABSCESS [None]
  - MYELOMA RECURRENCE [None]
